FAERS Safety Report 25905711 (Version 2)
Quarter: 2025Q4

REPORT INFORMATION
  Report Type: Spontaneous
  Country: US (occurrence: US)
  Receive Date: 20251010
  Receipt Date: 20251128
  Transmission Date: 20260117
  Serious: No
  Sender: GLAXOSMITHKLINE
  Company Number: US-GSK-US2025AMR122675

PATIENT
  Sex: Female

DRUGS (1)
  1. FLUTICASONE PROPIONATE [Suspect]
     Active Substance: FLUTICASONE PROPIONATE
     Indication: Product used for unknown indication
     Dosage: UNK

REACTIONS (2)
  - Product dose omission issue [Unknown]
  - Product complaint [Unknown]
